FAERS Safety Report 19156063 (Version 3)
Quarter: 2021Q2

REPORT INFORMATION
  Report Type: Spontaneous
  Country: TR (occurrence: TR)
  Receive Date: 20210419
  Receipt Date: 20210511
  Transmission Date: 20210717
  Serious: Yes (Other)
  Sender: FDA-Public Use
  Company Number: TR-PFIZER INC-2021352221

PATIENT
  Age: 55 Year
  Sex: Female

DRUGS (4)
  1. CHAMPIX [Suspect]
     Active Substance: VARENICLINE TARTRATE
     Indication: SMOKING CESSATION THERAPY
     Dosage: UNK
     Dates: start: 2020
  2. CHAMPIX [Suspect]
     Active Substance: VARENICLINE TARTRATE
     Dosage: 1 MG, 2X/DAY
  3. CHAMPIX [Suspect]
     Active Substance: VARENICLINE TARTRATE
     Dosage: 1 MG, 2X/DAY
     Dates: end: 202103
  4. DIAFORMIN [Concomitant]
     Active Substance: METFORMIN HYDROCHLORIDE
     Indication: INSULIN RESISTANCE
     Dosage: 1000 MG

REACTIONS (6)
  - Dizziness [Recovered/Resolved]
  - Binge eating [Recovered/Resolved]
  - Depression [Recovered/Resolved]
  - Hallucination [Recovered/Resolved]
  - Weight increased [Not Recovered/Not Resolved]
  - Psychiatric symptom [Not Recovered/Not Resolved]
